FAERS Safety Report 6272347-8 (Version None)
Quarter: 2009Q3

REPORT INFORMATION
  Report Type: 
  Country: None (occurrence: None)
  Receive Date: 20090713
  Receipt Date: 20080729
  Transmission Date: 20100115
  Serious: No
  Sender: FDA-Public Use
  Company Number: 2008BM000150

PATIENT
  Age: 38 Year
  Sex: Female

DRUGS (4)
  1. KUVAN [Suspect]
     Indication: PHENYLKETONURIA
     Dosage: 600 MG; QD; PO, 300 MG; QD; PO
     Route: 048
  2. PRENATAL /00231801/ (CON.) [Concomitant]
  3. NUTRIENTS WITHOUT PHENYLALANINE (CON.) [Concomitant]
  4. CARNITINE (CON.) [Concomitant]

REACTIONS (1)
  - DRUG EXPOSURE DURING PREGNANCY [None]
